FAERS Safety Report 16889900 (Version 1)
Quarter: 2019Q4

REPORT INFORMATION
  Report Type: Spontaneous
  Country: CA (occurrence: CA)
  Receive Date: 20191007
  Receipt Date: 20191007
  Transmission Date: 20200122
  Serious: Yes (Other)
  Sender: FDA-Public Use
  Company Number: CA-ORION CORPORATION ORION PHARMA-TREX2019-3990

PATIENT
  Age: 67 Year
  Sex: Female

DRUGS (14)
  1. METHOTREXATE (TRADE NAME UNKNOWN) [Suspect]
     Active Substance: METHOTREXATE
     Indication: PSORIATIC ARTHROPATHY
     Dosage: STRENGTH: 2.5 MG TABLET, 8 TABLETS
     Route: 048
     Dates: start: 201906
  2. DEPO-MEDROL [Concomitant]
     Active Substance: METHYLPREDNISOLONE ACETATE
     Indication: ASPIRATION JOINT
     Route: 065
     Dates: start: 201906, end: 201906
  3. PREDNISONE. [Concomitant]
     Active Substance: PREDNISONE
     Route: 065
     Dates: end: 201906
  4. PREDNISONE. [Concomitant]
     Active Substance: PREDNISONE
     Dosage: STRENGTH: 5MG
     Route: 048
     Dates: start: 20190925
  5. ARAVA [Concomitant]
     Active Substance: LEFLUNOMIDE
     Indication: PSORIATIC ARTHROPATHY
  6. PREDNISONE. [Concomitant]
     Active Substance: PREDNISONE
     Route: 065
     Dates: start: 201906, end: 201907
  7. NOVO-FOLACID [Concomitant]
     Indication: PSORIASIS
     Route: 048
  8. PREDNISONE. [Concomitant]
     Active Substance: PREDNISONE
     Dosage: FOR 4 WEEKS
     Route: 048
     Dates: end: 20190925
  9. ELTROXIN [Concomitant]
     Active Substance: LEVOTHYROXINE
     Indication: PSORIATIC ARTHROPATHY
  10. ELTROXIN [Concomitant]
     Active Substance: LEVOTHYROXINE
     Indication: PSORIASIS
     Route: 065
  11. TYLENOL ARTHRITIS PAIN [Concomitant]
     Active Substance: ACETAMINOPHEN
     Route: 065
  12. NOVO-FOLACID [Concomitant]
     Indication: PSORIATIC ARTHROPATHY
  13. PREDNISONE. [Concomitant]
     Active Substance: PREDNISONE
     Route: 065
     Dates: start: 201907
  14. ARAVA [Concomitant]
     Active Substance: LEFLUNOMIDE
     Indication: PSORIASIS
     Route: 048
     Dates: start: 201907

REACTIONS (8)
  - Spinal pain [Unknown]
  - Fatigue [Unknown]
  - Condition aggravated [Unknown]
  - Arthralgia [Recovered/Resolved]
  - Groin pain [Unknown]
  - Joint swelling [Recovered/Resolved]
  - Osteoarthritis [Unknown]
  - Therapeutic product effect incomplete [Unknown]

NARRATIVE: CASE EVENT DATE: 2019
